FAERS Safety Report 7691438-8 (Version None)
Quarter: 2011Q3

REPORT INFORMATION
  Report Type: 
  Country: None (occurrence: None)
  Receive Date: 20110817
  Receipt Date: 20110817
  Transmission Date: 20111222
  Serious: No
  Sender: FDA-Public Use
  Company Number: None

PATIENT
  Age: 74 Year
  Sex: Female

DRUGS (10)
  1. GEMFIBROZIL [Concomitant]
  2. ASPIRIN [Concomitant]
  3. COUMADIN [Concomitant]
  4. LOPRESSOR [Concomitant]
  5. PRADAXA [Suspect]
     Indication: ATRIAL FIBRILLATION
     Dosage: 150 MG BID P.O.
     Route: 048
     Dates: start: 20110307
  6. ZOCOR [Concomitant]
  7. LASIX [Concomitant]
  8. ALTACE [Concomitant]
  9. CALCIUM CARBONATE [Concomitant]
  10. ALDACTONE [Concomitant]

REACTIONS (4)
  - OEDEMA PERIPHERAL [None]
  - ANAEMIA [None]
  - WEIGHT DECREASED [None]
  - FATIGUE [None]
